FAERS Safety Report 14138319 (Version 3)
Quarter: 2017Q4

REPORT INFORMATION
  Report Type: Spontaneous
  Country: US (occurrence: US)
  Receive Date: 20171027
  Receipt Date: 20171108
  Transmission Date: 20180321
  Serious: Yes (Hospitalization)
  Sender: FDA-Public Use
  Company Number: US-LUNDBECK-DKLU2038864

PATIENT
  Age: 86 Year
  Sex: Male

DRUGS (4)
  1. NORTHERA [Suspect]
     Active Substance: DROXIDOPA
     Indication: DIZZINESS
  2. NORTHERA [Suspect]
     Active Substance: DROXIDOPA
     Indication: PARKINSON^S DISEASE
     Route: 048
     Dates: start: 20171011
  3. NORTHERA [Suspect]
     Active Substance: DROXIDOPA
     Indication: ORTHOSTATIC HYPOTENSION
  4. NORTHERA [Suspect]
     Active Substance: DROXIDOPA
     Indication: PRESYNCOPE

REACTIONS (4)
  - Tremor [Unknown]
  - Fall [Unknown]
  - Loss of control of legs [Unknown]
  - Asthenia [Unknown]

NARRATIVE: CASE EVENT DATE: 20171026
